FAERS Safety Report 10638472 (Version 2)
Quarter: 2014Q4

REPORT INFORMATION
  Report Type: Spontaneous
  Country: US (occurrence: None)
  Receive Date: 20141204
  Receipt Date: 20141223
  Transmission Date: 20150529
  Serious: Yes (Other)
  Sender: FDA-Public Use
  Company Number: 2014-US-015685

PATIENT
  Age: 35 Year
  Sex: Male
  Weight: 86.2 kg

DRUGS (3)
  1. XYREM [Suspect]
     Active Substance: SODIUM OXYBATE
     Indication: NARCOLEPSY
     Route: 048
     Dates: start: 201407
  2. LORAZEPAM (LORAZEPAM) [Suspect]
     Active Substance: LORAZEPAM
     Indication: MOOD SWINGS
     Dates: start: 201410
  3. WELLBUTRIN [Concomitant]
     Active Substance: BUPROPION HYDROCHLORIDE

REACTIONS (4)
  - Aggression [None]
  - Drug abuse [None]
  - Mood swings [None]
  - Psychomotor hyperactivity [None]

NARRATIVE: CASE EVENT DATE: 201410
